FAERS Safety Report 10429934 (Version 1)
Quarter: 2014Q3

REPORT INFORMATION
  Report Type: Spontaneous
  Country: US (occurrence: None)
  Receive Date: 20140813
  Receipt Date: 20140813
  Transmission Date: 20150326
  Serious: Yes (Hospitalization)
  Sender: FDA-Public Use
  Company Number: 2014SE18189

PATIENT
  Age: 5 Month
  Sex: Female

DRUGS (6)
  1. ALBUTEROL (SALBUTAMOL) [Concomitant]
     Active Substance: ALBUTEROL
  2. SYNAGIS [Suspect]
     Active Substance: PALIVIZUMAB
     Dates: start: 20140211
  3. SYNAGIS [Suspect]
     Active Substance: PALIVIZUMAB
     Dates: start: 20131107
  4. HYDRAZINE [Concomitant]
     Active Substance: HYDRAZINE SULFATE
  5. VITAMIN D (ERGOCALCIFEROL) [Concomitant]
     Active Substance: ERGOCALCIFEROL
  6. ZINC [Concomitant]
     Active Substance: ZINC\ZINC CHLORIDE

REACTIONS (2)
  - Respiratory syncytial virus infection [None]
  - Drug dose omission [None]

NARRATIVE: CASE EVENT DATE: 201312
